FAERS Safety Report 6256941-6 (Version None)
Quarter: 2009Q3

REPORT INFORMATION
  Report Type: 
  Country: None (occurrence: None)
  Receive Date: 20090706
  Receipt Date: 20090630
  Transmission Date: 20100115
  Serious: Yes (Death, Other)
  Sender: FDA-Public Use
  Company Number: PHHY2009CA01223

PATIENT
  Sex: Male

DRUGS (7)
  1. EXJADE [Suspect]
     Indication: MYELODYSPLASTIC SYNDROME
     Dosage: 1625 MG, UNK
     Dates: start: 20080501
  2. EXJADE [Suspect]
     Dosage: 1250 MG/DAY
     Route: 048
     Dates: end: 20090115
  3. DIGOXIN [Concomitant]
  4. LEVOTHYROXINE SODIUM [Concomitant]
  5. ATORVASTATIN CALCIUM [Concomitant]
  6. DOMPERIDONE [Concomitant]
  7. IPRATROPIUM BROMIDE [Concomitant]

REACTIONS (5)
  - BONE MARROW DISORDER [None]
  - BRONCHITIS CHRONIC [None]
  - CARDIOPULMONARY FAILURE [None]
  - PSORIASIS [None]
  - WEIGHT DECREASED [None]
